FAERS Safety Report 9995454 (Version 1)
Quarter: 2014Q1

REPORT INFORMATION
  Report Type: Spontaneous
  Country: US (occurrence: None)
  Receive Date: 20140307
  Receipt Date: 20140307
  Transmission Date: 20141002
  Serious: Yes (Life-Threatening, Hospitalization, Disabling, Other)
  Sender: FDA-Public Use
  Company Number: None

PATIENT
  Age: 41 Year
  Sex: Male
  Weight: 114.76 kg

DRUGS (7)
  1. ANDROGEL [Suspect]
     Indication: THROMBOSIS
     Route: 048
     Dates: start: 20140128
  2. ANDROGEL [Suspect]
     Indication: ANTICOAGULANT THERAPY
     Route: 048
     Dates: start: 20140128
  3. ANDROGEL [Suspect]
     Route: 048
     Dates: start: 20140128
  4. VITAMIN D3 [Concomitant]
  5. CENTRUM SILVER [Concomitant]
  6. FLAXSEED OIL [Concomitant]
  7. METAMUCIL [Concomitant]

REACTIONS (2)
  - Cerebral thrombosis [None]
  - Brain injury [None]
